FAERS Safety Report 14879620 (Version 2)
Quarter: 2018Q2

REPORT INFORMATION
  Report Type: Spontaneous
  Country: CO (occurrence: CO)
  Receive Date: 20180511
  Receipt Date: 20180519
  Transmission Date: 20180711
  Serious: No
  Sender: FDA-Public Use
  Company Number: CO-AUROBINDO-AUR-APL-2018-018034

PATIENT

DRUGS (1)
  1. EMTRICITABINE+TENOFOVIR 200/300MG [Suspect]
     Active Substance: EMTRICITABINE\TENOFOVIR
     Indication: PROPHYLAXIS
     Dosage: UNK UNK, ONCE A DAY
     Route: 048
     Dates: start: 20180208

REACTIONS (7)
  - Headache [Unknown]
  - Tachycardia [Recovered/Resolved]
  - Vomiting [Unknown]
  - Diarrhoea [Unknown]
  - Eyelid oedema [Recovered/Resolved]
  - Vision blurred [Recovered/Resolved]
  - Skin discolouration [Unknown]

NARRATIVE: CASE EVENT DATE: 20180209
